FAERS Safety Report 6015414-6 (Version None)
Quarter: 2008Q4

REPORT INFORMATION
  Report Type: 
  Country: None (occurrence: None)
  Receive Date: 20081222
  Receipt Date: 20081215
  Transmission Date: 20090506
  Serious: Yes (Disabling)
  Sender: FDA-Public Use
  Company Number: JP-BAYER-200812186BYL

PATIENT
  Age: 46 Year
  Sex: Female
  Weight: 47 kg

DRUGS (1)
  1. MIRENA [Suspect]
     Indication: CONTRACEPTION
     Dosage: UNIT DOSE: 20 ?G/D
     Route: 015
     Dates: start: 20070713, end: 20071226

REACTIONS (3)
  - ABDOMINAL DISTENSION [None]
  - METRORRHAGIA [None]
  - SENSATION OF FOREIGN BODY [None]
